FAERS Safety Report 8174198-6 (Version None)
Quarter: 2012Q1

REPORT INFORMATION
  Report Type: 
  Country: None (occurrence: None)
  Receive Date: 20120229
  Receipt Date: 20120223
  Transmission Date: 20120608
  Serious: Yes (Other)
  Sender: FDA-Public Use
  Company Number: US-BAYER-2011-005939

PATIENT
  Age: 46 Year
  Sex: Male
  Weight: 38.549 kg

DRUGS (37)
  1. TRASYLOL [Suspect]
     Indication: TRICUSPID VALVE REPAIR
     Dosage: LOADING DOSE: NOT NOTED
     Dates: start: 20071009, end: 20071009
  2. AMICAR [Concomitant]
     Dosage: 10 ML RINCE AND SPIT
     Dates: start: 20071003
  3. ZINACEF [Concomitant]
     Dosage: 1.5 GRAMS
     Dates: start: 20071009, end: 20071009
  4. DOPAMINE HCL [Concomitant]
     Dosage: UNK
     Dates: start: 20071009, end: 20071009
  5. PLATELETS [Concomitant]
     Dosage: 2 U, UNK
     Dates: start: 20071009
  6. ASPIRIN [Concomitant]
     Dosage: 325 MG, UNK
     Route: 048
     Dates: start: 20070629
  7. DILTIAZEM HCL [Concomitant]
     Dosage: 120 MG, UNK
     Route: 048
     Dates: start: 20070629
  8. VERSED [Concomitant]
     Dosage: 4 MG
     Dates: start: 20071009, end: 20071009
  9. PRECEDEX [Concomitant]
     Dosage: UNK
     Dates: start: 20071009, end: 20071009
  10. TOPROL-XL [Concomitant]
     Dosage: 50 MG, UNK
     Route: 048
  11. LEXAPRO [Concomitant]
     Dosage: 10 MG, UNK
     Route: 048
     Dates: start: 20070928
  12. DOXYCYCLINE [Concomitant]
     Indication: ABSCESS LIMB
     Dosage: UNK
     Route: 048
     Dates: start: 20070810
  13. VANCOMYCIN [Concomitant]
     Dosage: 1 G
     Route: 042
  14. FRESH FROZEN PLASMA [Concomitant]
     Dosage: 4 U, UNK
     Dates: start: 20071009
  15. LIDOCAINE [Concomitant]
     Dosage: 60 MG
     Dates: start: 20071009, end: 20071009
  16. TRASYLOL [Suspect]
     Indication: MITRAL VALVE REPLACEMENT
     Dosage: INITIAL (TEST) DOSE:1 ML
     Dates: start: 20071009, end: 20071009
  17. LEXAPRO [Concomitant]
     Dosage: 200 MG, UNK
     Route: 048
  18. LACTULOSE [Concomitant]
     Dosage: 30 MG, UNK
     Route: 048
     Dates: start: 20070801
  19. AMICAR [Concomitant]
     Dosage: 10 ML RINCE AND SPIT
     Dates: start: 20071004
  20. NITROGLYCERIN [Concomitant]
     Dosage: UNK
     Dates: start: 20071009, end: 20071009
  21. NITROGLYCERIN [Concomitant]
     Dosage: UNK
     Dates: start: 20071009, end: 20071009
  22. TRASYLOL [Suspect]
     Indication: PERICARDIAL REPAIR
     Dosage: 50ML/HR
     Dates: start: 20071009, end: 20071009
  23. DIGOXIN [Concomitant]
     Dosage: 250 MCG, UNK
     Route: 048
     Dates: start: 20050601
  24. ALTACE [Concomitant]
     Dosage: 5 MG, UNK
     Route: 048
     Dates: start: 20070205
  25. LOVENOX [Concomitant]
     Dosage: 80 MG, BID
     Route: 058
  26. CIPRO [Concomitant]
     Indication: URINARY TRACT INFECTION
     Dosage: 500 MG, UNK
     Route: 048
     Dates: start: 20071003
  27. HEPARIN [Concomitant]
     Dosage: 30,000 UNITS
     Dates: start: 20071009, end: 20071009
  28. PROTAMINE SULFATE [Concomitant]
  29. PAVULON [Concomitant]
     Dosage: 16 MG
     Dates: start: 20071009, end: 20071009
  30. LASIX [Concomitant]
     Dosage: 40 MG, BID
     Dates: start: 20050401
  31. POTASSIUM CHLORIDE [Concomitant]
     Dosage: 20 MEQ, UNK
     Route: 048
     Dates: start: 20050601
  32. ACETYLSALICYLIC ACID SRT [Concomitant]
     Dosage: 81 MG, UNK
     Route: 048
  33. LISINOPRIL [Concomitant]
     Dosage: 40 MG, UNK
     Route: 048
  34. LEVOFLOXACIN [Concomitant]
     Dosage: 500 MG, UNK
     Route: 048
     Dates: start: 20070629
  35. AVELOX [Concomitant]
     Dosage: 400 MG, UNK
     Route: 042
     Dates: start: 20070625
  36. FENTANYL [Concomitant]
     Dosage: 15 MG
     Dates: start: 20071009, end: 20071009
  37. AMIDATE [Concomitant]
     Dosage: 16 MG
     Dates: start: 20071009, end: 20071009

REACTIONS (10)
  - ANXIETY [None]
  - INJURY [None]
  - EMOTIONAL DISTRESS [None]
  - STRESS [None]
  - UNEVALUABLE EVENT [None]
  - FEAR [None]
  - PAIN [None]
  - RENAL INJURY [None]
  - RENAL FAILURE [None]
  - RENAL IMPAIRMENT [None]
